FAERS Safety Report 11903245 (Version 1)
Quarter: 2016Q1

REPORT INFORMATION
  Report Type: Spontaneous
  Country: PS (occurrence: PS)
  Receive Date: 20160110
  Receipt Date: 20160110
  Transmission Date: 20160526
  Serious: Yes (Death, Other)
  Sender: FDA-Public Use
  Company Number: PHHY2015PS172891

PATIENT
  Age: 34 Year
  Sex: Male

DRUGS (2)
  1. HYDROXYUREA. [Concomitant]
     Active Substance: HYDROXYUREA
     Indication: WHITE BLOOD CELL COUNT INCREASED
     Dosage: UNK UNK, PRN
     Route: 065
  2. TASIGNA [Suspect]
     Active Substance: NILOTINIB
     Indication: CHRONIC MYELOID LEUKAEMIA
     Dosage: 400 MG, BID
     Route: 048
     Dates: start: 201503, end: 201509

REACTIONS (10)
  - Blast crisis in myelogenous leukaemia [Fatal]
  - Sepsis [Fatal]
  - Pancytopenia [Fatal]
  - Neutropenia [Fatal]
  - Gastrointestinal haemorrhage [Unknown]
  - Acute leukaemia [Fatal]
  - Thrombocytopenia [Unknown]
  - Leukopenia [Unknown]
  - Coma [Unknown]
  - Anaemia [Unknown]
